FAERS Safety Report 7306033-X (Version None)
Quarter: 2011Q1

REPORT INFORMATION
  Report Type: 
  Country: None (occurrence: None)
  Receive Date: 20110222
  Receipt Date: 20110216
  Transmission Date: 20110831
  Serious: Yes (Hospitalization)
  Sender: FDA-Public Use
  Company Number: IT-PFIZER INC-2011035101

PATIENT
  Sex: Male

DRUGS (1)
  1. IRINOTECAN HCL [Suspect]

REACTIONS (1)
  - ANGINA UNSTABLE [None]
